FAERS Safety Report 7332620-9 (Version None)
Quarter: 2011Q1

REPORT INFORMATION
  Report Type: 
  Country: None (occurrence: None)
  Receive Date: 20110222
  Receipt Date: 20110214
  Transmission Date: 20110831
  Serious: Yes (Other)
  Sender: FDA-Public Use
  Company Number: 2008EU001434

PATIENT
  Age: 40 Year
  Sex: Female

DRUGS (8)
  1. CELLCEPT (MYCOPHENOLATE MOFETIIL) [Concomitant]
  2. PLAVIX [Suspect]
     Indication: MYOCARDIAL INFARCTION
     Dosage: 1 DF, ORAL
     Route: 048
     Dates: start: 20080523
  3. POTASSIUM CHLORIDE [Concomitant]
  4. SECTRAL [Concomitant]
  5. PROGRAF [Suspect]
     Indication: LIVER TRANSPLANT
     Dosage: 5 MG, ORAL
     Route: 048
     Dates: start: 20080221
  6. KARDEGIC (ACETYLSALICYLIC ACID, ACETYLSALICYLATE LYSINE) [Concomitant]
  7. ATORVASTATIN CALCIUM [Suspect]
     Indication: MYOCARDIAL INFARCTION
     Dosage: 80 MG, ORAL
     Route: 048
     Dates: start: 20080530, end: 20080725
  8. PERINDOPRIL ERBUMINE [Concomitant]

REACTIONS (4)
  - UNDERDOSE [None]
  - VENTRICULAR FIBRILLATION [None]
  - MYOCARDIAL INFARCTION [None]
  - DRUG INTERACTION [None]
